FAERS Safety Report 15921972 (Version 1)
Quarter: 2019Q1

REPORT INFORMATION
  Report Type: Spontaneous
  Country: US (occurrence: US)
  Receive Date: 20190206
  Receipt Date: 20190206
  Transmission Date: 20190417
  Serious: Yes (Hospitalization, Other)
  Sender: FDA-Public Use
  Company Number: US-APOTEX-2019AP007144

PATIENT
  Age: 51 Year
  Sex: Male

DRUGS (7)
  1. GABAPENTIN. [Suspect]
     Active Substance: GABAPENTIN
     Indication: PAIN
     Dosage: 100 MG, TID
     Route: 065
  2. GABAPENTIN. [Suspect]
     Active Substance: GABAPENTIN
     Indication: SUICIDAL IDEATION
     Dosage: THREE TO FOUR 600-MG TABLETS AT 2-HOUR INTERVALS
     Route: 045
  3. SERTRALINE [Concomitant]
     Active Substance: SERTRALINE HYDROCHLORIDE
     Indication: PRODUCT USED FOR UNKNOWN INDICATION
     Dosage: 50 MG, DAILY
     Route: 065
  4. DIVALPROEX [Concomitant]
     Active Substance: DIVALPROEX SODIUM
     Indication: PRODUCT USED FOR UNKNOWN INDICATION
     Dosage: 1000 MG, Q.H.S.
     Route: 065
  5. TRAZODONE [Concomitant]
     Active Substance: TRAZODONE HYDROCHLORIDE
     Indication: PRODUCT USED FOR UNKNOWN INDICATION
     Dosage: 100 MG, Q.H.S.
     Route: 065
  6. GABAPENTIN. [Suspect]
     Active Substance: GABAPENTIN
     Indication: ANXIETY
     Dosage: 300 MG, TID
     Route: 065
  7. GABAPENTIN. [Suspect]
     Active Substance: GABAPENTIN
     Dosage: 400 MG, (10 CAPSULES)
     Route: 045

REACTIONS (12)
  - Irritability [Unknown]
  - Suicidal ideation [Unknown]
  - Overdose [Unknown]
  - Diarrhoea [Unknown]
  - Nausea [Unknown]
  - Incorrect route of product administration [Unknown]
  - Withdrawal syndrome [Unknown]
  - Substance use disorder [Unknown]
  - Drug abuse [Unknown]
  - Dysphoria [Unknown]
  - Somnolence [Unknown]
  - Intentional product misuse [Unknown]
